FAERS Safety Report 9526800 (Version 1)
Quarter: 2013Q3

REPORT INFORMATION
  Report Type: Report from Study
  Country: JP (occurrence: JP)
  Receive Date: 20130916
  Receipt Date: 20130916
  Transmission Date: 20140515
  Serious: Yes (Death)
  Sender: FDA-Public Use
  Company Number: JP-GLAXOSMITHKLINE-B0921592A

PATIENT
  Sex: Male
  Weight: 47 kg

DRUGS (36)
  1. ARRANON [Suspect]
     Indication: T-CELL TYPE ACUTE LEUKAEMIA
     Dosage: 650MG PER DAY
     Route: 042
     Dates: start: 20110318, end: 20110322
  2. ARRANON [Suspect]
     Indication: T-CELL TYPE ACUTE LEUKAEMIA
     Dosage: 650MG PER DAY
     Route: 042
     Dates: start: 20110425, end: 20110429
  3. ARRANON [Suspect]
     Indication: T-CELL TYPE ACUTE LEUKAEMIA
     Dosage: 650MG PER DAY
     Route: 042
     Dates: start: 20110523, end: 20110527
  4. ARRANON [Suspect]
     Indication: T-CELL TYPE ACUTE LEUKAEMIA
     Dosage: 650MG PER DAY
     Route: 042
     Dates: start: 20110626, end: 20110628
  5. LEUKERIN [Concomitant]
     Indication: NEOPLASM MALIGNANT
     Route: 048
     Dates: start: 20110222, end: 20110311
  6. METHOTREXATE [Concomitant]
     Indication: NEOPLASM MALIGNANT
     Dates: start: 20110314, end: 20110314
  7. METHOTREXATE [Concomitant]
     Indication: NEOPLASM MALIGNANT
     Dates: start: 20110325, end: 20110329
  8. METHOTREXATE [Concomitant]
     Indication: NEOPLASM MALIGNANT
     Dates: start: 20110502, end: 20110506
  9. METHOTREXATE [Concomitant]
     Indication: NEOPLASM MALIGNANT
     Dates: start: 20110530, end: 20110603
  10. METHOTREXATE [Concomitant]
     Indication: NEOPLASM MALIGNANT
     Dates: start: 20110626, end: 20110628
  11. CYLOCIDE [Concomitant]
     Indication: NEOPLASM MALIGNANT
     Dates: start: 20110314, end: 20110314
  12. CYLOCIDE [Concomitant]
     Indication: NEOPLASM MALIGNANT
     Route: 042
     Dates: start: 20110314, end: 20110317
  13. CYLOCIDE [Concomitant]
     Indication: NEOPLASM MALIGNANT
     Dates: start: 20110325, end: 20110329
  14. CYLOCIDE [Concomitant]
     Indication: NEOPLASM MALIGNANT
     Dates: start: 20110502, end: 20110506
  15. CYLOCIDE [Concomitant]
     Indication: NEOPLASM MALIGNANT
     Dates: start: 20110530, end: 20110603
  16. CYLOCIDE [Concomitant]
     Indication: NEOPLASM MALIGNANT
     Dates: start: 20110626, end: 20110628
  17. VEPESID [Concomitant]
     Indication: NEOPLASM MALIGNANT
     Route: 042
     Dates: start: 20110314, end: 20110317
  18. VEPESID [Concomitant]
     Indication: NEOPLASM MALIGNANT
     Route: 042
     Dates: start: 20110325, end: 20110329
  19. VEPESID [Concomitant]
     Indication: NEOPLASM MALIGNANT
     Route: 042
     Dates: start: 20110502, end: 20110506
  20. VEPESID [Concomitant]
     Indication: NEOPLASM MALIGNANT
     Route: 042
     Dates: start: 20110530, end: 20110603
  21. VEPESID [Concomitant]
     Indication: NEOPLASM MALIGNANT
     Route: 042
     Dates: start: 20110626, end: 20110628
  22. ENDOXAN [Concomitant]
     Indication: NEOPLASM MALIGNANT
     Dates: start: 20110325, end: 20110329
  23. ENDOXAN [Concomitant]
     Indication: NEOPLASM MALIGNANT
     Dates: start: 20110502, end: 20110506
  24. ENDOXAN [Concomitant]
     Indication: NEOPLASM MALIGNANT
     Dates: start: 20110530, end: 20110603
  25. ENDOXAN [Concomitant]
     Indication: NEOPLASM MALIGNANT
     Dates: start: 20110626, end: 20110628
  26. HYDROCORTISONE SODIUM SUCCINATE [Concomitant]
     Indication: NEOPLASM MALIGNANT
     Dates: start: 20110325, end: 20110329
  27. HYDROCORTISONE SODIUM SUCCINATE [Concomitant]
     Indication: NEOPLASM MALIGNANT
     Dates: start: 20110502, end: 20110506
  28. HYDROCORTISONE SODIUM SUCCINATE [Concomitant]
     Indication: NEOPLASM MALIGNANT
     Dates: start: 20110530, end: 20110603
  29. HYDROCORTISONE SODIUM SUCCINATE [Concomitant]
     Indication: NEOPLASM MALIGNANT
     Dates: start: 20110626, end: 20110628
  30. BROACT [Concomitant]
     Route: 042
     Dates: start: 20110318, end: 20110322
  31. FUNGUARD [Concomitant]
     Route: 042
     Dates: start: 20110318, end: 20110322
  32. NAFAMOSTAT [Concomitant]
     Dates: start: 20110318, end: 20110322
  33. GRANISETRON [Concomitant]
     Dates: start: 20110318, end: 20110322
  34. GRANISETRON [Concomitant]
     Dates: start: 20110425, end: 20110425
  35. GRANISETRON [Concomitant]
     Dates: start: 20110523, end: 20110527
  36. GRANISETRON [Concomitant]
     Dates: start: 20110626, end: 20110628

REACTIONS (1)
  - Engraft failure [Fatal]
